FAERS Safety Report 14658988 (Version 1)
Quarter: 2018Q1

REPORT INFORMATION
  Report Type: Spontaneous
  Country: US (occurrence: US)
  Receive Date: 20180320
  Receipt Date: 20180320
  Transmission Date: 20180509
  Serious: No
  Sender: FDA-Public Use
  Company Number: US-CELGENEUS-USA-20180305608

PATIENT
  Age: 68 Year
  Sex: Female
  Weight: 111.23 kg

DRUGS (5)
  1. THALOMID [Suspect]
     Active Substance: THALIDOMIDE
     Dosage: 100 MILLIGRAM
     Route: 048
     Dates: start: 200803
  2. THALOMID [Suspect]
     Active Substance: THALIDOMIDE
     Indication: PLASMA CELL MYELOMA
     Dosage: 100 MILLIGRAM
     Route: 048
     Dates: start: 200308
  3. THALOMID [Suspect]
     Active Substance: THALIDOMIDE
     Dosage: 50- 100 MILLIGRAM
     Route: 048
     Dates: start: 200908
  4. THALOMID [Suspect]
     Active Substance: THALIDOMIDE
     Dosage: 100, 200 MILLIGRAM
     Route: 048
     Dates: start: 200312
  5. THALOMID [Suspect]
     Active Substance: THALIDOMIDE
     Dosage: 100 MILLIGRAM
     Route: 048
     Dates: start: 201510

REACTIONS (2)
  - Unevaluable event [Unknown]
  - Weight increased [Unknown]

NARRATIVE: CASE EVENT DATE: 201802
